FAERS Safety Report 8370269-X (Version None)
Quarter: 2012Q2

REPORT INFORMATION
  Report Type: 
  Country: None (occurrence: None)
  Receive Date: 20120518
  Receipt Date: 20110707
  Transmission Date: 20120825
  Serious: No
  Sender: FDA-Public Use
  Company Number: US-ASTRAZENECA-2010SE54958

PATIENT
  Age: 86 Year
  Sex: Female

DRUGS (1)
  1. PRILOSEC OTC [Suspect]
     Indication: GASTRIC DISORDER
     Dosage: UNK DOSE, DAILY
     Route: 048

REACTIONS (2)
  - NAUSEA [None]
  - PRODUCT CONTAMINATION PHYSICAL [None]
